FAERS Safety Report 10181756 (Version 1)
Quarter: 2014Q2

REPORT INFORMATION
  Report Type: Spontaneous
  Country: FR (occurrence: FR)
  Receive Date: 20140519
  Receipt Date: 20140519
  Transmission Date: 20141212
  Serious: Yes (Death)
  Sender: FDA-Public Use
  Company Number: FR-PFIZER INC-2014134144

PATIENT
  Age: 86 Year
  Sex: Male

DRUGS (11)
  1. FRAGMINE [Suspect]
     Dosage: 1 DF, 1X/DAY
     Route: 058
     Dates: start: 20140403, end: 20140407
  2. ALPRAZOLAM [Suspect]
     Dosage: 3 DF, DAILY
     Route: 048
     Dates: end: 20140407
  3. KARDEGIC [Suspect]
     Dosage: 75 MG, DAILY
     Route: 048
     Dates: end: 20140407
  4. FLUOXETINE [Suspect]
     Dosage: 1 DF, DAILY
     Route: 048
     Dates: end: 20140407
  5. TARDYFERON [Suspect]
     Dosage: 80 MG, DAILY
     Route: 048
     Dates: end: 20140407
  6. SPECIAFOLDINE [Suspect]
     Dosage: 10 MG, DAILY
     Route: 048
     Dates: end: 20140407
  7. SERESTA [Suspect]
     Dosage: 10 MG, DAILY
     Route: 048
     Dates: end: 20140407
  8. EBIXA [Suspect]
     Dosage: 20 MG, DAILY
     Route: 048
     Dates: end: 20140407
  9. IMOVANE [Suspect]
     Dosage: 3.75 MG, DAILY
     Route: 048
     Dates: end: 20140407
  10. DOLIPRANE [Suspect]
     Dosage: 4 DF, DAILY
     Route: 048
     Dates: end: 20140407
  11. FORLAX [Suspect]
     Dosage: 1 DF, DAILY
     Route: 048
     Dates: end: 20140407

REACTIONS (3)
  - Haemorrhagic stroke [Fatal]
  - Brain oedema [Fatal]
  - Nervous system disorder [Fatal]
